FAERS Safety Report 10141775 (Version 1)
Quarter: 2014Q2

REPORT INFORMATION
  Report Type: Spontaneous
  Country: US (occurrence: US)
  Receive Date: 20140429
  Receipt Date: 20140429
  Transmission Date: 20141212
  Serious: No
  Sender: FDA-Public Use
  Company Number: US-009507513-1403USA013647

PATIENT
  Age: 2 Year
  Sex: Male

DRUGS (4)
  1. CLARITIN CHEWABLE TABLETS [Suspect]
     Indication: SEASONAL ALLERGY
     Dosage: UNK, UNKNOWN
     Route: 048
  2. CLARITIN CHEWABLE TABLETS [Suspect]
     Indication: RHINORRHOEA
  3. CLARITIN CHEWABLE TABLETS [Suspect]
     Indication: UPPER RESPIRATORY TRACT CONGESTION
  4. CLARITIN CHEWABLE TABLETS [Suspect]
     Indication: COUGH

REACTIONS (4)
  - Psychomotor hyperactivity [Unknown]
  - Eye discharge [Unknown]
  - Drug effect delayed [Unknown]
  - Drug effect decreased [Unknown]
